FAERS Safety Report 9419901 (Version 1)
Quarter: 2013Q3

REPORT INFORMATION
  Report Type: Spontaneous
  Country: US (occurrence: None)
  Receive Date: 20130723
  Receipt Date: 20130723
  Transmission Date: 20140515
  Serious: Yes (Other)
  Sender: FDA-Public Use
  Company Number: None

PATIENT
  Age: 40 Year
  Sex: Male
  Weight: 104.33 kg

DRUGS (1)
  1. GUAIFENESIN AND PHENYLEPHRINE [Suspect]
     Route: 048

REACTIONS (3)
  - Abdominal pain upper [None]
  - Constipation [None]
  - Haematochezia [None]
